FAERS Safety Report 18847750 (Version 4)
Quarter: 2021Q1

REPORT INFORMATION
  Report Type: Report from Study
  Country: CA (occurrence: CA)
  Receive Date: 20210204
  Receipt Date: 20210222
  Transmission Date: 20210419
  Serious: Yes (Hospitalization, Other)
  Sender: FDA-Public Use
  Company Number: CA-HLS-202106985

PATIENT
  Age: 61 Year
  Sex: Male

DRUGS (1)
  1. CLOZARIL [Suspect]
     Active Substance: CLOZAPINE
     Indication: PRODUCT USED FOR UNKNOWN INDICATION
     Route: 048
     Dates: start: 20140107, end: 20210127

REACTIONS (5)
  - Oropharyngeal discomfort [Unknown]
  - Neutropenia [Unknown]
  - Pneumonia [Unknown]
  - Suspected COVID-19 [Unknown]
  - Leukopenia [Unknown]

NARRATIVE: CASE EVENT DATE: 20210127
